FAERS Safety Report 8440230 (Version 2)
Quarter: 2012Q4

REPORT INFORMATION
  Report Type: 
  Country: DE (occurrence: DE)
  Receive Date: 20120305
  Receipt Date: 20120912
  Transmission Date: 20130627
  Serious: Yes (Hospitalization)
  Sender: FDA-Public Use
  Company Number: DE-MYLANLABS-2012S1003983

PATIENT
  Age: 46 Year
  Sex: Female
  Weight: 55 kg

DRUGS (2)
  1. CITALOPRAM [Suspect]
     Indication: INTENTIONAL OVERDOSE
     Dosage: 70 tablets of 20mg
     Route: 048
  2. OPIPRAMOL [Suspect]
     Indication: INTENTIONAL OVERDOSE
     Dosage: 10 tablets of 50mg
     Route: 048

REACTIONS (6)
  - Electrocardiogram QT prolonged [Recovered/Resolved]
  - Intentional overdose [Recovered/Resolved]
  - Suicide attempt [Recovered/Resolved]
  - Ataxia [Recovered/Resolved]
  - Agitation [Recovered/Resolved]
  - Cognitive disorder [Recovered/Resolved]
